FAERS Safety Report 5676388-0 (Version None)
Quarter: 2008Q1

REPORT INFORMATION
  Report Type: 
  Country: None (occurrence: None)
  Receive Date: 20080321
  Receipt Date: 20080313
  Transmission Date: 20080703
  Serious: Yes (Hospitalization, Other)
  Sender: FDA-Public Use
  Company Number: FI-PFIZER INC-2008023413

PATIENT
  Age: 42 Year
  Sex: Male

DRUGS (7)
  1. CHAMPIX [Suspect]
  2. SEROQUEL [Concomitant]
  3. RISPERDAL [Concomitant]
  4. LAMICTAL [Concomitant]
  5. MIRTAZAPINE [Concomitant]
  6. OPAMOX [Concomitant]
  7. ZOLPIDEM TARTRATE [Concomitant]
     Indication: INSOMNIA

REACTIONS (1)
  - BIPOLAR DISORDER [None]
